FAERS Safety Report 18421872 (Version 1)
Quarter: 2020Q4

REPORT INFORMATION
  Report Type: Report from Study
  Country: BR (occurrence: BR)
  Receive Date: 20201023
  Receipt Date: 20201023
  Transmission Date: 20210114
  Serious: Yes (Other)
  Sender: FDA-Public Use
  Company Number: BR-JNJFOC-20201020141

PATIENT
  Age: 12 Year
  Sex: Female
  Weight: 46.1 kg

DRUGS (2)
  1. AZATHIOPRINE. [Concomitant]
     Active Substance: AZATHIOPRINE
  2. INFLIXIMAB, RECOMBINANT [Suspect]
     Active Substance: INFLIXIMAB
     Indication: COLITIS ULCERATIVE
     Dosage: 3 VIALS EVERY 4 WEEKS
     Route: 042
     Dates: start: 202005

REACTIONS (4)
  - Product use issue [Unknown]
  - Off label use [Unknown]
  - Product dose omission issue [Unknown]
  - Anal haemorrhage [Recovered/Resolved]

NARRATIVE: CASE EVENT DATE: 20201008
